FAERS Safety Report 6224068-5 (Version None)
Quarter: 2009Q2

REPORT INFORMATION
  Report Type: 
  Country: None (occurrence: None)
  Receive Date: 20090612
  Receipt Date: 20090309
  Transmission Date: 20091009
  Serious: No
  Sender: FDA-Public Use
  Company Number: US-ABBOTT-09P-163-0561330-00

PATIENT
  Age: 25 Year

DRUGS (1)
  1. HUMIRA [Suspect]
     Indication: DRUG USE FOR UNKNOWN INDICATION
     Route: 058
     Dates: start: 20090201, end: 20090201

REACTIONS (4)
  - CHOKING SENSATION [None]
  - INJECTION SITE REACTION [None]
  - PARAESTHESIA [None]
  - PRURITUS GENERALISED [None]
